FAERS Safety Report 24306174 (Version 2)
Quarter: 2024Q3

REPORT INFORMATION
  Report Type: Spontaneous
  Country: DE (occurrence: DE)
  Receive Date: 20240911
  Receipt Date: 20240919
  Transmission Date: 20241017
  Serious: Yes (Hospitalization)
  Sender: BOEHRINGER INGELHEIM
  Company Number: DE-BoehringerIngelheim-2024-BI-043412

PATIENT
  Age: 81 Year
  Sex: Male

DRUGS (6)
  1. JARDIANCE [Suspect]
     Active Substance: EMPAGLIFLOZIN
     Indication: Type 2 diabetes mellitus
  2. CLOPIDOGREL [Concomitant]
     Active Substance: CLOPIDOGREL BISULFATE
     Indication: Arteriosclerosis
     Dosage: ALL 7 DAYS, INTERVALL DUE TO PETECHIAL BLEEDING DURING DAILY INTAKE
  3. REPATHA [Concomitant]
     Active Substance: EVOLOCUMAB
     Indication: Hypercholesterolaemia
     Dosage: ALL 4-6 WEEKS
  4. METFORMIN HYDROCHLORIDE [Concomitant]
     Active Substance: METFORMIN HYDROCHLORIDE
     Indication: Type 2 diabetes mellitus
     Dosage: 1-2-1
  5. Vigantol 500 [Concomitant]
     Indication: Product used for unknown indication
  6. Levothyroxin 50 Mikrogramm [Concomitant]
     Indication: Hypothyroidism

REACTIONS (7)
  - Akinesia [Recovered/Resolved]
  - Hypovolaemia [Unknown]
  - Dyskinesia [Unknown]
  - Bacterial infection [Unknown]
  - Fall [Recovered/Resolved]
  - Parkinson^s disease [Unknown]
  - Syncope [Recovered/Resolved]

NARRATIVE: CASE EVENT DATE: 20240901
